FAERS Safety Report 9831989 (Version 3)
Quarter: 2014Q1

REPORT INFORMATION
  Report Type: Spontaneous
  Country: US (occurrence: US)
  Receive Date: 20140121
  Receipt Date: 20140206
  Transmission Date: 20141002
  Serious: Yes (Other)
  Sender: FDA-Public Use
  Company Number: US-009507513-1401USA006891

PATIENT
  Age: 61 Year
  Sex: Female

DRUGS (4)
  1. ASMANEX TWISTHALER [Suspect]
     Indication: ASTHMA
     Dosage: ONE INHALATION TWICE A DAY
     Route: 055
     Dates: start: 201201
  2. TRIAMCINOLONE [Concomitant]
  3. ESTRADIOL [Concomitant]
     Route: 048
  4. VENTOLIN (ALBUTEROL) [Concomitant]

REACTIONS (4)
  - Surgery [Recovering/Resolving]
  - Wisdom teeth removal [Recovering/Resolving]
  - Pain in jaw [Recovering/Resolving]
  - Product quality issue [Unknown]
